FAERS Safety Report 8495567-0 (Version None)
Quarter: 2012Q2

REPORT INFORMATION
  Report Type: 
  Country: None (occurrence: None)
  Receive Date: 20120403
  Receipt Date: 20110509
  Transmission Date: 20120825
  Serious: Yes (Other)
  Sender: FDA-Public Use
  Company Number: 1-0511-50

PATIENT
  Sex: Female

DRUGS (5)
  1. TOM'S OF MAINE (ALUMINUM FREE DEODORANT) [Concomitant]
  2. BUSPAR [Concomitant]
  3. PROZAC [Concomitant]
  4. DERMA-SMOOTHE/FS [Suspect]
     Indication: PRURITUS
     Dosage: TOPICAL
     Route: 061
  5. DERMA-SMOOTHE/FS [Suspect]
     Indication: RASH
     Dosage: TOPICAL
     Route: 061

REACTIONS (2)
  - CONDITION AGGRAVATED [None]
  - PRURITUS [None]
